FAERS Safety Report 6674616-6 (Version None)
Quarter: 2010Q2

REPORT INFORMATION
  Report Type: 
  Country: None (occurrence: None)
  Receive Date: 20100409
  Receipt Date: 20100330
  Transmission Date: 20101027
  Serious: Yes (Other)
  Sender: FDA-Public Use
  Company Number: BR-ROCHE-694685

PATIENT

DRUGS (1)
  1. TAMIFLU [Suspect]
     Route: 064
     Dates: start: 20100301

REACTIONS (1)
  - CAESAREAN SECTION [None]
